FAERS Safety Report 9726097 (Version 1)
Quarter: 2013Q4

REPORT INFORMATION
  Report Type: Spontaneous
  Country: GB (occurrence: None)
  Receive Date: 20131129
  Receipt Date: 20131129
  Transmission Date: 20140711
  Serious: Yes (Hospitalization, Disabling, Other)
  Sender: FDA-Public Use
  Company Number: 2034936

PATIENT
  Age: 60 Year
  Sex: Female

DRUGS (14)
  1. MEROPENEM [Suspect]
     Indication: VAGINAL ABSCESS
     Dosage: 1 G GRAM(S), 2 DAY, INTRAVENOUS (NOT OTHERWISE SPECIFIED)
     Route: 042
     Dates: start: 20131026, end: 20131028
  2. OMEPRAZOLE [Concomitant]
  3. TOLTERODINE [Concomitant]
  4. PREGABALIN [Concomitant]
  5. ALENDRONATE [Concomitant]
  6. CALCIUM CARBONATE W/COLECALCIFEROL [Concomitant]
  7. CIMETIDINE [Concomitant]
  8. FLUCONAZOLE [Concomitant]
  9. DARBEPOETIN ALFA [Concomitant]
  10. RANITIDINE [Concomitant]
  11. CHLORPHENAMINE [Concomitant]
  12. LINEZOLID [Concomitant]
  13. VANCOMYCIN [Concomitant]
  14. METRONIDAZOLE [Concomitant]

REACTIONS (2)
  - Quality of life decreased [None]
  - Rash generalised [None]
